FAERS Safety Report 9149272 (Version 2)
Quarter: 2013Q2

REPORT INFORMATION
  Report Type: Spontaneous
  Country: BR (occurrence: None)
  Receive Date: 20130131
  Receipt Date: 20130418
  Transmission Date: 20140414
  Serious: Yes (Other)
  Sender: FDA-Public Use
  Company Number: DSU-2013-00690

PATIENT
  Age: 68 Year
  Sex: Male

DRUGS (5)
  1. OLMETEC HCT [Suspect]
     Indication: PRODUCT USED FOR UNKNOWN INDICATION
     Dosage: 20/12.5 MG, PER ORAL
     Route: 048
  2. OLMETEC [Suspect]
     Indication: PRODUCT USED FOR UNKNOWN INDICATION
     Dosage: UNKNOWN (QD), PER ORAL
     Route: 048
     Dates: start: 201204
  3. EZETROL (EZETIMIBE) (EZETIMIBE) [Concomitant]
  4. LAMITOR (LAMOTRIGINE) (LAMOTRIGINE) [Concomitant]
  5. LIPLESS (CIPROFIBRATE) (CIPROFIBRATE) [Concomitant]

REACTIONS (3)
  - Cardiac valve disease [None]
  - Surgical procedure repeated [None]
  - Incorrect dose administered [None]
